FAERS Safety Report 13841579 (Version 1)
Quarter: 2017Q3

REPORT INFORMATION
  Report Type: Spontaneous
  Country: US (occurrence: US)
  Receive Date: 20170807
  Receipt Date: 20170807
  Transmission Date: 20171127
  Serious: No
  Sender: FDA-Public Use
  Company Number: US-GALDERMA-US17000308

PATIENT
  Age: 12 Year
  Sex: Female

DRUGS (2)
  1. ACZONE [Concomitant]
     Active Substance: DAPSONE
     Route: 061
  2. ADAPALENE GEL, 0.3% [Suspect]
     Active Substance: ADAPALENE
     Indication: PRODUCT USED FOR UNKNOWN INDICATION
     Route: 061

REACTIONS (1)
  - Skin burning sensation [Unknown]
